FAERS Safety Report 7717652-0 (Version None)
Quarter: 2011Q3

REPORT INFORMATION
  Report Type: 
  Country: None (occurrence: None)
  Receive Date: 20110824
  Receipt Date: 20110811
  Transmission Date: 20111222
  Serious: Yes (Death, Other)
  Sender: FDA-Public Use
  Company Number: 2011070226

PATIENT
  Age: 27 Year
  Sex: Female
  Weight: 76.2043 kg

DRUGS (4)
  1. CARISOPRODOL [Suspect]
  2. HYDROCODONE BITARTRATE [Suspect]
  3. OXYCODONE HCL [Suspect]
  4. ACETAMINOPHEN [Suspect]

REACTIONS (10)
  - PULMONARY OEDEMA [None]
  - HEPATIC STEATOSIS [None]
  - PULMONARY CONGESTION [None]
  - RENAL DISORDER [None]
  - HEPATIC NECROSIS [None]
  - TOXICITY TO VARIOUS AGENTS [None]
  - HEPATIC CONGESTION [None]
  - CEREBRAL ISCHAEMIA [None]
  - ACCIDENTAL DEATH [None]
  - HYPOPHAGIA [None]
